FAERS Safety Report 8276389-2 (Version None)
Quarter: 2012Q2

REPORT INFORMATION
  Report Type: 
  Country: None (occurrence: None)
  Receive Date: 20120412
  Receipt Date: 20120410
  Transmission Date: 20120825
  Serious: Yes (Death, Other)
  Sender: FDA-Public Use
  Company Number: DE-JNJFOC-20120313899

PATIENT
  Sex: Male

DRUGS (21)
  1. PREDNISOLONE [Suspect]
     Indication: POST TRANSPLANT LYMPHOPROLIFERATIVE DISORDER
     Dosage: CYCLE 2
     Route: 065
  2. DOXORUBICIN HCL [Suspect]
     Indication: POST TRANSPLANT LYMPHOPROLIFERATIVE DISORDER
     Dosage: CYCLE 2
     Route: 042
  3. ETOPOSIDE [Suspect]
     Indication: POST TRANSPLANT LYMPHOPROLIFERATIVE DISORDER
     Dosage: CYCLE 2
     Route: 065
  4. DEXAMETHASONE [Suspect]
     Dosage: CYCLE 2
     Route: 065
  5. ETOPOSIDE [Suspect]
     Dosage: CYCLE 1
     Route: 065
  6. DEXAMETHASONE [Suspect]
     Indication: POST TRANSPLANT LYMPHOPROLIFERATIVE DISORDER
     Dosage: CYCLE 1
     Route: 065
  7. CYCLOPHOSPHAMIDE [Suspect]
     Indication: POST TRANSPLANT LYMPHOPROLIFERATIVE DISORDER
     Dosage: CYCLE 2
     Route: 065
  8. CYCLOPHOSPHAMIDE [Suspect]
     Dosage: CYCLE 1
     Route: 065
  9. VINCRISTINE [Suspect]
     Indication: POST TRANSPLANT LYMPHOPROLIFERATIVE DISORDER
     Dosage: CYCLE 1
     Route: 065
  10. VINCRISTINE [Suspect]
     Dosage: CYCLE 2
     Route: 065
  11. BLEOMYCIN SULFATE [Suspect]
     Dosage: CYCLE 2
     Route: 065
  12. BORTEZOMIB [Suspect]
     Indication: POST TRANSPLANT LYMPHOPROLIFERATIVE DISORDER
     Dosage: CYCLE 1
     Route: 065
  13. PROCARBAZINE HYDROCHLORIDE [Suspect]
     Indication: POST TRANSPLANT LYMPHOPROLIFERATIVE DISORDER
     Dosage: CYCLE 1
     Route: 065
  14. DOXORUBICIN HCL [Suspect]
     Dosage: CYCLE 1
     Route: 065
  15. BLEOMYCIN SULFATE [Suspect]
     Indication: POST TRANSPLANT LYMPHOPROLIFERATIVE DISORDER
     Dosage: CYCLE 1
     Route: 065
  16. PREDNISOLONE [Suspect]
     Dosage: CYCLE 1
     Route: 065
  17. DOXORUBICIN HCL [Suspect]
     Dosage: CYCLE 1
     Route: 042
  18. DOXORUBICIN HCL [Suspect]
     Dosage: CYCLE 2
     Route: 065
  19. PROCARBAZINE HYDROCHLORIDE [Suspect]
     Dosage: CYCLE 2
     Route: 065
  20. BORTEZOMIB [Suspect]
     Dosage: CYCLE 2
     Route: 065
  21. NEUPOGEN [Concomitant]
     Route: 065

REACTIONS (4)
  - INFECTION [None]
  - CYTOMEGALOVIRUS CHORIORETINITIS [None]
  - NEUTROPENIA [None]
  - PLASMABLASTIC LYMPHOMA [None]
